FAERS Safety Report 8520248-4 (Version None)
Quarter: 2012Q3

REPORT INFORMATION
  Report Type: 
  Country: None (occurrence: None)
  Receive Date: 20120705
  Receipt Date: 20120705
  Transmission Date: 20120928
  Serious: Yes (Hospitalization)
  Sender: FDA-Public Use
  Company Number: None

PATIENT
  Age: 86 Year
  Sex: Female

DRUGS (9)
  1. DIPHENOXYLATE/ATROP [Concomitant]
  2. PREVALITE [Suspect]
     Indication: GASTROINTESTINAL DISORDER THERAPY
     Dosage: MIX AND DRINK 1 TO 2 PACKETS DAILY
     Dates: start: 20120307, end: 20120310
  3. OMEPRAZOLE [Concomitant]
  4. CLONAZEPAM [Concomitant]
  5. SYNTHROID [Concomitant]
  6. AGGRENOX [Concomitant]
  7. CYMBALTA [Concomitant]
  8. ATENOLOL [Concomitant]
  9. SINGULAIR [Concomitant]

REACTIONS (6)
  - PAIN IN EXTREMITY [None]
  - DYSSTASIA [None]
  - LOSS OF CONTROL OF LEGS [None]
  - FALL [None]
  - MUSCLE SPASMS [None]
  - HYPOAESTHESIA [None]
